FAERS Safety Report 8358252-1 (Version None)
Quarter: 2012Q2

REPORT INFORMATION
  Report Type: 
  Country: None (occurrence: None)
  Receive Date: 20120514
  Receipt Date: 20120509
  Transmission Date: 20120825
  Serious: Yes (Life-Threatening, Hospitalization)
  Sender: FDA-Public Use
  Company Number: US-GLAXOSMITHKLINE-R0022264A

PATIENT
  Age: 3 Year
  Sex: Male
  Weight: 15.45 kg

DRUGS (4)
  1. BLINDED VACCINE [Suspect]
     Indication: PROPHYLAXIS
     Route: 030
     Dates: start: 20110516, end: 20110516
  2. ORAPRED [Concomitant]
     Indication: ASTHMA
     Route: 048
     Dates: start: 20120321
  3. ALBUTEROL [Suspect]
     Indication: ASTHMA
     Route: 055
     Dates: start: 20120321
  4. SINGULAIR [Concomitant]
     Indication: ASTHMA
     Route: 048
     Dates: start: 20120321

REACTIONS (1)
  - ASTHMA [None]
